FAERS Safety Report 9248421 (Version 1)
Quarter: 2013Q1

REPORT INFORMATION
  Report Type: Spontaneous
  Country: US (occurrence: None)
  Receive Date: 20121113
  Receipt Date: 20121113
  Transmission Date: 20140127
  Serious: No
  Sender: FDA-Public Use
  Company Number: PHEH2012US006976

PATIENT
  Age: 10 Year
  Sex: Female

DRUGS (1)
  1. TRILEPTAL (OXCARBAZEPINE) [Suspect]
     Indication: EPILEPSY

REACTIONS (4)
  - Stevens-Johnson syndrome [None]
  - Pyrexia [None]
  - Rash generalised [None]
  - Skin disorder [None]
